FAERS Safety Report 7536080-4 (Version None)
Quarter: 2011Q2

REPORT INFORMATION
  Report Type: 
  Country: None (occurrence: None)
  Receive Date: 20110609
  Receipt Date: 20110526
  Transmission Date: 20111010
  Serious: Yes (Life-Threatening, Hospitalization)
  Sender: FDA-Public Use
  Company Number: AU-RANBAXY-2011RR-45119

PATIENT
  Age: 45 Year
  Sex: Female

DRUGS (1)
  1. IBUPROFEN [Suspect]
     Indication: DENTAL CARIES
     Dosage: 9.6-14.4 G/DAY
     Route: 048

REACTIONS (3)
  - RENAL TUBULAR ACIDOSIS [None]
  - HYPOKALAEMIA [None]
  - OVERDOSE [None]
